FAERS Safety Report 6501010-0 (Version None)
Quarter: 2009Q4

REPORT INFORMATION
  Report Type: 
  Country: None (occurrence: None)
  Receive Date: 20091216
  Receipt Date: 20090527
  Transmission Date: 20100525
  Serious: No
  Sender: FDA-Public Use
  Company Number: A0786406A

PATIENT
  Age: 64 Year
  Sex: Male

DRUGS (1)
  1. COMMIT [Suspect]

REACTIONS (7)
  - CONDITION AGGRAVATED [None]
  - COUGH [None]
  - HEART RATE INCREASED [None]
  - INTENTIONAL DRUG MISUSE [None]
  - MULTIPLE ALLERGIES [None]
  - OCULAR HYPERAEMIA [None]
  - POSTNASAL DRIP [None]
